FAERS Safety Report 13167855 (Version 1)
Quarter: 2017Q1

REPORT INFORMATION
  Report Type: Spontaneous
  Country: US (occurrence: US)
  Receive Date: 20170131
  Receipt Date: 20170131
  Transmission Date: 20170428
  Serious: Yes (Death)
  Sender: FDA-Public Use
  Company Number: US-JNJFOC-20170127291

PATIENT
  Sex: Female

DRUGS (19)
  1. IMODIUM [Concomitant]
     Active Substance: LOPERAMIDE HYDROCHLORIDE
  2. PROCHLORPERAZINE. [Concomitant]
     Active Substance: PROCHLORPERAZINE
  3. VALTREX [Concomitant]
     Active Substance: VALACYCLOVIR HYDROCHLORIDE
  4. FUROSEMIDE. [Concomitant]
     Active Substance: FUROSEMIDE
  5. CALCITROL [Concomitant]
     Active Substance: CALCITRIOL
  6. FISH OIL [Concomitant]
     Active Substance: FISH OIL
  7. OMEPRAZOLE. [Concomitant]
     Active Substance: OMEPRAZOLE
  8. IMBRUVICA [Suspect]
     Active Substance: IBRUTINIB
     Indication: PRODUCT USED FOR UNKNOWN INDICATION
     Dosage: 420 MG, QD
     Route: 065
     Dates: start: 20161115
  9. DULCOLAX NOS [Concomitant]
     Active Substance: BISACODYL OR DOCUSATE SODIUM
  10. LEVOTHYROXINE. [Concomitant]
     Active Substance: LEVOTHYROXINE
  11. ROPINIROLE. [Concomitant]
     Active Substance: ROPINIROLE
  12. ASPIRIN. [Concomitant]
     Active Substance: ASPIRIN
  13. SENNA [Concomitant]
     Active Substance: SENNA LEAF\SENNOSIDES\SENNOSIDES A AND B
  14. ZADITOR [Concomitant]
     Active Substance: KETOTIFEN FUMARATE
  15. GABAPENTIN. [Concomitant]
     Active Substance: GABAPENTIN
  16. HYDROCODONE [Concomitant]
     Active Substance: HYDROCODONE
  17. PRAVASTATIN. [Concomitant]
     Active Substance: PRAVASTATIN
  18. METOLAZONE. [Concomitant]
     Active Substance: METOLAZONE
  19. ULORIC [Concomitant]
     Active Substance: FEBUXOSTAT

REACTIONS (1)
  - Death [Fatal]
